FAERS Safety Report 6441900 (Version 15)
Quarter: 2014Q1

REPORT INFORMATION
  Report Type: Spontaneous
  Country: US (occurrence: US)
  Receive Date: 20071015
  Receipt Date: 20140321
  Transmission Date: 20141002
  Serious: Yes (Hospitalization, Other)
  Sender: FDA-Public Use
  Company Number: PHEH2007US13320

PATIENT
  Age: 52 Year
  Sex: Female

DRUGS (36)
  1. AREDIA [Suspect]
     Indication: PLASMA CELL MYELOMA
     Dosage: 90 MG, QMO OVER 4 HRS
     Route: 041
     Dates: start: 200110, end: 2002
  2. AREDIA [Suspect]
     Route: 041
     Dates: start: 20080707
  3. ZOMETA [Suspect]
     Indication: PLASMA CELL MYELOMA
     Dosage: 4 MG, Q2MO INFUSION OVER 25 MINS EVERY OTHER MONTH
     Route: 041
     Dates: end: 20050721
  4. ACTOS [Suspect]
     Indication: DIABETES MELLITUS
     Dosage: 30 MG, QHS
  5. DEXAMETHASONE [Suspect]
  6. REVLIMID [Concomitant]
  7. DECADRON [Concomitant]
  8. DOXIL [Concomitant]
  9. VELCADE [Concomitant]
  10. CHEMOTHERAPEUTICS NOS [Concomitant]
  11. MAGNESIUM OXIDE [Concomitant]
     Dosage: 400 MG, BID
  12. AVALIDE [Concomitant]
     Dosage: 12.5 MG, QD
  13. XANAX [Concomitant]
     Dosage: 0.5 MG, QD
  14. K-DUR [Concomitant]
     Dosage: 20 MEQ, BID
  15. ALKERAN [Concomitant]
     Dates: start: 20011010
  16. CYTOXAN [Concomitant]
  17. VINCRISTINE + ADRIAMYCIN + DEXAMETHASONE [Concomitant]
     Dates: start: 20020521
  18. PREDNISONE [Concomitant]
     Dates: start: 20011001
  19. PROCRIT                            /00909301/ [Concomitant]
  20. THALIDOMIDE [Concomitant]
  21. VACCINE /PERTUSSIS/TETANUS/DIPHTHERIA/ ^CNG^ [Concomitant]
  22. INFLUENZA VACCINE [Concomitant]
     Route: 065
  23. HEPATITIS B VACCINE [Concomitant]
  24. PNEUMOVAX [Concomitant]
  25. POLIO-VACCINE [Concomitant]
  26. MELPHALAN [Concomitant]
  27. FORTAMET [Concomitant]
  28. ASPIRIN ^BAYER^ [Concomitant]
  29. PENTAMIDINE [Concomitant]
  30. CYCLOPHOSPHAMIDE [Concomitant]
  31. AUGMENTIN [Concomitant]
  32. CRESTOR [Concomitant]
  33. METFORMIN [Concomitant]
  34. ENALAPRIL [Concomitant]
  35. NORVASC [Concomitant]
  36. BENADRYL [Concomitant]

REACTIONS (93)
  - Pneumonia [Recovered/Resolved]
  - Hip fracture [Unknown]
  - Depression [Unknown]
  - Suicidal ideation [Unknown]
  - Nervousness [Unknown]
  - Decreased appetite [Unknown]
  - Weight decreased [Unknown]
  - Insomnia [Unknown]
  - Osteonecrosis of jaw [Unknown]
  - Pain [Unknown]
  - Infection [Unknown]
  - Deformity [Unknown]
  - Impaired healing [Unknown]
  - Lower limb fracture [Unknown]
  - Diabetes mellitus [Unknown]
  - Microalbuminuria [Unknown]
  - Hypercalcaemia [Recovering/Resolving]
  - Bone lesion [Unknown]
  - Goitre [Unknown]
  - Toxic nodular goitre [Unknown]
  - Thyroid mass [Unknown]
  - Intraductal papilloma of breast [Unknown]
  - Breast discharge [Unknown]
  - Mammary duct ectasia [Unknown]
  - Fibrous dysplasia of bone [Unknown]
  - Osteoarthritis [Unknown]
  - Streptococcus test positive [Unknown]
  - Radiculopathy [Unknown]
  - Uterine leiomyoma [Unknown]
  - Bronchitis [Unknown]
  - Dyslipidaemia [Unknown]
  - Second primary malignancy [Unknown]
  - Hyperparathyroidism [Unknown]
  - Metastatic lymphoma [Unknown]
  - Breast hyperplasia [Unknown]
  - Vitamin D deficiency [Unknown]
  - Psychotic disorder [Unknown]
  - Folliculitis [Unknown]
  - Syncope [Unknown]
  - Rib fracture [Unknown]
  - Renal failure acute [Unknown]
  - Breast cancer [Unknown]
  - Convulsion [Unknown]
  - Neutropenia [Unknown]
  - Aortic arteriosclerosis [Unknown]
  - Left ventricular hypertrophy [Unknown]
  - Mitral valve incompetence [Unknown]
  - Tricuspid valve incompetence [Unknown]
  - Aortic valve incompetence [Unknown]
  - Pulmonary valve incompetence [Unknown]
  - Neuropathy peripheral [Unknown]
  - Dysaesthesia [Unknown]
  - Perineurial cyst [Unknown]
  - Arthralgia [Recovering/Resolving]
  - Pancytopenia [Recovering/Resolving]
  - Walking aid user [Recovered/Resolved]
  - Herpes zoster [Unknown]
  - Gastric ulcer [Unknown]
  - Pain in extremity [Unknown]
  - Anaemia [Unknown]
  - Malaise [Unknown]
  - Chest discomfort [Unknown]
  - Hypoaesthesia [Unknown]
  - Fatigue [Unknown]
  - Leukopenia [Unknown]
  - Neutrophil count decreased [Unknown]
  - Thrombocytopenia [Unknown]
  - Musculoskeletal pain [Unknown]
  - Gait disturbance [Not Recovered/Not Resolved]
  - Diverticulum [Unknown]
  - Weight increased [Unknown]
  - Stomatitis [Unknown]
  - Sinusitis [Unknown]
  - Hypomagnesaemia [Unknown]
  - Nasal congestion [Unknown]
  - Urinary tract infection [Unknown]
  - Respiratory tract infection [Unknown]
  - Fall [Unknown]
  - Nervous system disorder [Unknown]
  - Dyspnoea [Unknown]
  - Sepsis [Unknown]
  - Sinus tachycardia [Unknown]
  - Swelling [Unknown]
  - Polyp [Unknown]
  - Oesophageal rupture [Unknown]
  - Haematemesis [Unknown]
  - Osteoporosis [Unknown]
  - Chest pain [Unknown]
  - Lymphadenopathy [Unknown]
  - Vascular calcification [Unknown]
  - Breast mass [Unknown]
  - Spinal disorder [Unknown]
  - Osteolysis [Unknown]
